FAERS Safety Report 4559922-3 (Version None)
Quarter: 2005Q1

REPORT INFORMATION
  Report Type: 
  Country: None (occurrence: None)
  Receive Date: 20050107
  Receipt Date: 20041021
  Transmission Date: 20050727
  Serious: Yes (Hospitalization)
  Sender: FDA-Public Use
  Company Number: 04P-163-0278116-00

PATIENT
  Age: 24 Year
  Sex: Male

DRUGS (1)
  1. OMNICEF [Suspect]
     Dosage: FOR 28 DAYS, PER ORAL
     Route: 048
     Dates: start: 20040101, end: 20040101

REACTIONS (1)
  - CLOSTRIDIUM COLITIS [None]
